FAERS Safety Report 5810421-8 (Version None)
Quarter: 2008Q3

REPORT INFORMATION
  Report Type: 
  Country: None (occurrence: None)
  Receive Date: 20080715
  Receipt Date: 20080703
  Transmission Date: 20090109
  Serious: Yes (Other)
  Sender: FDA-Public Use
  Company Number: CA-PFIZER INC-2008045064

PATIENT
  Sex: Female
  Weight: 72.6 kg

DRUGS (9)
  1. CHANTIX [Suspect]
     Indication: SMOKING CESSATION THERAPY
     Route: 048
  2. VIOKASE [Concomitant]
  3. RABEPRAZOLE SODIUM [Concomitant]
  4. NOVOSPIROTON [Concomitant]
  5. SYMBICORT [Concomitant]
  6. INSULIN HUMAN [Concomitant]
     Indication: DIABETES MELLITUS
  7. HUMULIN R [Concomitant]
     Indication: DIABETES MELLITUS
  8. HUMULIN N [Concomitant]
     Indication: DIABETES MELLITUS
  9. CLONAZEPAM [Concomitant]
     Indication: SLEEP DISORDER

REACTIONS (1)
  - BLOOD GLUCOSE INCREASED [None]
